FAERS Safety Report 9202041 (Version 2)
Quarter: 2015Q1

REPORT INFORMATION
  Report Type: Spontaneous
  Country: US (occurrence: US)
  Receive Date: 20130401
  Receipt Date: 20150121
  Transmission Date: 20150721
  Serious: Yes (Hospitalization)
  Sender: FDA-Public Use
  Company Number: US-BAYER-2013-038408

PATIENT
  Age: 31 Year
  Sex: Female
  Weight: 71 kg

DRUGS (12)
  1. YAZ [Suspect]
     Active Substance: DROSPIRENONE\ETHINYL ESTRADIOL
  2. YASMIN [Suspect]
     Active Substance: DROSPIRENONE\ETHINYL ESTRADIOL
  3. LORTAB [Concomitant]
     Active Substance: ACETAMINOPHEN\HYDROCODONE BITARTRATE
  4. DIAZEPAM. [Concomitant]
     Active Substance: DIAZEPAM
     Dosage: 10 MG, UNK
  5. LEXAPRO [Concomitant]
     Active Substance: ESCITALOPRAM OXALATE
  6. ZOFRAN [Concomitant]
     Active Substance: ONDANSETRON HYDROCHLORIDE
  7. TRIAZOLAM. [Concomitant]
     Active Substance: TRIAZOLAM
     Dosage: 0.25 MG, UNK
  8. DILAUDID [Concomitant]
     Active Substance: HYDROMORPHONE HYDROCHLORIDE
     Route: 042
  9. CITALOPRAM [Concomitant]
     Active Substance: CITALOPRAM HYDROBROMIDE
     Dosage: 20 MG, UNK
  10. AZITHROMYCIN [Concomitant]
     Active Substance: AZITHROMYCIN ANHYDROUS
     Dosage: 250 MG, UNK
  11. AVELOX [Concomitant]
     Active Substance: MOXIFLOXACIN HYDROCHLORIDE
     Route: 042
  12. VALIUM [Concomitant]
     Active Substance: DIAZEPAM

REACTIONS (3)
  - Pain [None]
  - Pulmonary embolism [None]
  - Injury [None]

NARRATIVE: CASE EVENT DATE: 20110921
